FAERS Safety Report 15772738 (Version 2)
Quarter: 2019Q1

REPORT INFORMATION
  Report Type: Spontaneous
  Country: US (occurrence: US)
  Receive Date: 20181228
  Receipt Date: 20190205
  Transmission Date: 20190417
  Serious: No
  Sender: FDA-Public Use
  Company Number: US-PFIZER INC-2018528439

PATIENT
  Age: 62 Year
  Sex: Female
  Weight: 79.82 kg

DRUGS (13)
  1. CALCIUM 600 + D [Concomitant]
     Active Substance: CALCIUM\VITAMIN D
     Dosage: 2000 MG, DAILY
  2. ASPIRIN [ACETYLSALICYLIC ACID] [Concomitant]
     Active Substance: ASPIRIN
     Dosage: 650 MG, 3X/DAY
  3. ACIDOSOL [Concomitant]
     Dosage: UNK, AS NEEDED (1500MG 1 DROP DAILY)
  4. PREDNISONE. [Concomitant]
     Active Substance: PREDNISONE
     Indication: FACIAL PARALYSIS
     Dosage: 20 MG, DAILY
  5. ASPIRIN [ACETYLSALICYLIC ACID] [Concomitant]
     Active Substance: ASPIRIN
     Dosage: UNK, 1X/DAY (5 ASPIRIN PER DAY)
  6. LORAZEPAM. [Concomitant]
     Active Substance: LORAZEPAM
     Dosage: UNK UNK, 1X/DAY (1/2-1 TAB AT BEDTIME)
  7. PEPCID [FAMOTIDINE] [Concomitant]
     Dosage: 40 MG, 2X/DAY
  8. SYNTHROID [Concomitant]
     Active Substance: LEVOTHYROXINE SODIUM
     Dosage: 100 UG, DAILY
  9. PREDNISONE. [Concomitant]
     Active Substance: PREDNISONE
     Dosage: 5 MG, DAILY
  10. IMURAN [Concomitant]
     Active Substance: AZATHIOPRINE
     Dosage: 50 MG, 2X/DAY
  11. METHOTREXATE SODIUM. [Suspect]
     Active Substance: METHOTREXATE SODIUM
     Dosage: 12.5 MG, WEEKLY (5 TABS =12.5 MG METHOTREXATE PER WEEK)
  12. METHOTREXATE SODIUM. [Suspect]
     Active Substance: METHOTREXATE SODIUM
     Indication: RHEUMATOID ARTHRITIS
     Dosage: 2.5 MG, WEEKLY
     Route: 048
  13. PREDNISONE. [Concomitant]
     Active Substance: PREDNISONE
     Dosage: 19 MG, DAILY

REACTIONS (13)
  - Nausea [Unknown]
  - Influenza [Unknown]
  - Vomiting [Unknown]
  - Arthralgia [Unknown]
  - Malaise [Unknown]
  - Dizziness [Unknown]
  - Diarrhoea [Unknown]
  - Hypoaesthesia [Not Recovered/Not Resolved]
  - Oral herpes [Unknown]
  - Alopecia [Unknown]
  - Fatigue [Unknown]
  - Loss of personal independence in daily activities [Unknown]
  - Pain in extremity [Unknown]
